FAERS Safety Report 11865275 (Version 1)
Quarter: 2015Q4

REPORT INFORMATION
  Report Type: Spontaneous
  Country: PE (occurrence: PE)
  Receive Date: 20151223
  Receipt Date: 20151223
  Transmission Date: 20160305
  Serious: Yes (Other)
  Sender: FDA-Public Use
  Company Number: PE-PFIZER INC-2015449709

PATIENT
  Age: 70 Year
  Sex: Female

DRUGS (1)
  1. XALATAN [Suspect]
     Active Substance: LATANOPROST

REACTIONS (4)
  - Memory impairment [Not Recovered/Not Resolved]
  - Meniscus injury [Not Recovered/Not Resolved]
  - Accident [Not Recovered/Not Resolved]
  - Confusional state [Not Recovered/Not Resolved]
